FAERS Safety Report 6783603-9 (Version None)
Quarter: 2010Q2

REPORT INFORMATION
  Report Type: 
  Country: None (occurrence: None)
  Receive Date: 20100618
  Receipt Date: 20100524
  Transmission Date: 20101027
  Serious: Yes (Hospitalization)
  Sender: FDA-Public Use
  Company Number: 8046412

PATIENT
  Sex: Male

DRUGS (2)
  1. CERTOLIZUMAB PEGOL [Suspect]
     Dosage: SUBCUTANEOUS; SUBCUTANEOUS
     Route: 058
     Dates: start: 20090422, end: 20090701
  2. CERTOLIZUMAB PEGOL [Suspect]
     Dosage: SUBCUTANEOUS; SUBCUTANEOUS
     Route: 058
     Dates: start: 20100425, end: 20100425

REACTIONS (3)
  - ABDOMINAL PAIN [None]
  - FISTULA [None]
  - STAPHYLOCOCCAL INFECTION [None]
